FAERS Safety Report 8816853 (Version 1)
Quarter: 2012Q4

REPORT INFORMATION
  Report Type: Spontaneous
  Country: US (occurrence: None)
  Receive Date: 20121002
  Receipt Date: 20121002
  Transmission Date: 20130627
  Serious: No
  Sender: FDA-Public Use
  Company Number: None

PATIENT
  Age: 64 Year
  Sex: Male
  Weight: 87.9 kg

DRUGS (1)
  1. MOXIFLOXACIN [Suspect]
     Indication: COPD EXACERBATION
     Dosage: 400 MG ONCE PO
     Route: 048
     Dates: start: 20120829, end: 20120829

REACTIONS (6)
  - Rash [None]
  - Asthenia [None]
  - Hypoaesthesia [None]
  - Hypoaesthesia oral [None]
  - Hypoaesthesia oral [None]
  - Dyspnoea [None]
